FAERS Safety Report 10092019 (Version 2)
Quarter: 2014Q2

REPORT INFORMATION
  Report Type: Spontaneous
  Country: US (occurrence: US)
  Receive Date: 20140421
  Receipt Date: 20140421
  Transmission Date: 20141212
  Serious: No
  Sender: FDA-Public Use
  Company Number: US-GILEAD-2013-0071515

PATIENT
  Age: 81 Year
  Sex: Female

DRUGS (13)
  1. LETAIRIS [Suspect]
     Indication: PRODUCT USED FOR UNKNOWN INDICATION
     Dates: start: 20130115, end: 20130217
  2. ACARBOSE [Concomitant]
  3. IPRATROPIUM [Concomitant]
  4. ASMANEX [Concomitant]
  5. SPIRIVA [Concomitant]
  6. HYDRALAZINE [Concomitant]
  7. PREDNISONE [Concomitant]
  8. METOPROLOL [Concomitant]
  9. DIOVAN [Concomitant]
  10. PRADAXA [Concomitant]
  11. FUROSEMIDE [Concomitant]
  12. LEVOTHYROXINE [Concomitant]
  13. PANTOPRAZOLE [Concomitant]

REACTIONS (3)
  - Oedema peripheral [Recovered/Resolved]
  - Fluid retention [Recovered/Resolved]
  - Peripheral swelling [Unknown]
